FAERS Safety Report 8110301-1 (Version None)
Quarter: 2012Q1

REPORT INFORMATION
  Report Type: 
  Country: None (occurrence: None)
  Receive Date: 20120202
  Receipt Date: 20120119
  Transmission Date: 20120608
  Serious: Yes (Other)
  Sender: FDA-Public Use
  Company Number: CA-ROCHE-GNE307760

PATIENT
  Sex: Male

DRUGS (3)
  1. OMALIZUMAB [Suspect]
     Indication: ASTHMA
     Dosage: 300 MG, 2/MONTH, FORM : VIAL
     Route: 058
     Dates: start: 20061113
  2. OMALIZUMAB [Suspect]
     Dosage: 300 MG, 2/MONTH, FORM : VIAL
     Dates: start: 20091105
  3. OMALIZUMAB [Suspect]
     Dosage: 300 MG, 2/MONTH, FORM : VIAL
     Route: 058
     Dates: start: 20091008

REACTIONS (7)
  - INFECTION [None]
  - FATIGUE [None]
  - EAR INFECTION [None]
  - SINUSITIS [None]
  - BRONCHITIS [None]
  - LOWER RESPIRATORY TRACT INFECTION [None]
  - BRONCHOPNEUMONIA [None]
